FAERS Safety Report 20517217 (Version 1)
Quarter: 2022Q1

REPORT INFORMATION
  Report Type: Spontaneous
  Country: US (occurrence: None)
  Receive Date: 20220224
  Receipt Date: 20220224
  Transmission Date: 20220423
  Serious: No
  Sender: FDA-Public Use
  Company Number: None

PATIENT
  Age: 69 Year
  Sex: Female

DRUGS (1)
  1. NIRMATRELVIR\RITONAVIR [Suspect]
     Active Substance: NIRMATRELVIR\RITONAVIR
     Indication: Cystitis
     Dosage: 300/100 MG BID PO
     Route: 048
     Dates: start: 20220203, end: 20220208

REACTIONS (2)
  - Dysuria [None]
  - Haematuria [None]

NARRATIVE: CASE EVENT DATE: 20220214
